FAERS Safety Report 16764780 (Version 1)
Quarter: 2019Q3

REPORT INFORMATION
  Report Type: Report from Study
  Country: US (occurrence: US)
  Receive Date: 20190903
  Receipt Date: 20190903
  Transmission Date: 20191005
  Serious: No
  Sender: FDA-Public Use
  Company Number: PHEH2019US036010

PATIENT
  Sex: Male

DRUGS (1)
  1. COSENTYX [Suspect]
     Active Substance: SECUKINUMAB
     Indication: PSORIATIC ARTHROPATHY
     Dosage: 300 MG, WEEKLY X 5 WEEKS THEN Q4W
     Route: 058
     Dates: start: 20190521

REACTIONS (3)
  - Skin hypertrophy [Unknown]
  - Joint effusion [Unknown]
  - Psoriasis [Unknown]
